FAERS Safety Report 4982372-2 (Version None)
Quarter: 2006Q2

REPORT INFORMATION
  Report Type: 
  Country: None (occurrence: None)
  Receive Date: 20060425
  Receipt Date: 20060414
  Transmission Date: 20061013
  Serious: Yes (Hospitalization)
  Sender: FDA-Public Use
  Company Number: PE-BRISTOL-MYERS SQUIBB COMPANY-13347026

PATIENT
  Age: 75 Year
  Sex: Male

DRUGS (11)
  1. CDDP [Suspect]
     Indication: GASTRIC CANCER
     Route: 041
     Dates: start: 20060331, end: 20060331
  2. TS-1 [Suspect]
     Indication: GASTRIC CANCER
     Route: 048
     Dates: start: 20060404
  3. SODIUM CHLORIDE [Concomitant]
     Indication: FLUID REPLACEMENT
     Route: 042
  4. DEXAMETHASONE [Concomitant]
     Indication: ANTIEMETIC SUPPORTIVE CARE
     Route: 042
  5. FUROSEMIDE [Concomitant]
     Indication: DIURETIC THERAPY
     Route: 042
     Dates: start: 20060331, end: 20060331
  6. DEXTROSE 5% [Concomitant]
     Indication: FLUID REPLACEMENT
     Route: 042
     Dates: start: 20060331, end: 20060331
  7. MAGNESIUM SULFATE [Concomitant]
     Indication: PROPHYLAXIS
     Route: 042
     Dates: start: 20060331, end: 20060331
  8. SODIUM CHLORIDE [Concomitant]
     Route: 042
     Dates: start: 20060331, end: 20060331
  9. POTASSIUM CHLORIDE [Concomitant]
     Indication: FLUID REPLACEMENT
     Route: 042
     Dates: start: 20060331, end: 20060331
  10. MANNITOL [Concomitant]
     Indication: DIURETIC THERAPY
     Route: 042
     Dates: start: 20060331, end: 20060331
  11. PALONOSETRON [Concomitant]
     Indication: ANTIEMETIC SUPPORTIVE CARE
     Route: 042
     Dates: start: 20060331, end: 20060331

REACTIONS (1)
  - DEHYDRATION [None]
